FAERS Safety Report 5224542-4 (Version None)
Quarter: 2007Q1

REPORT INFORMATION
  Report Type: 
  Country: None (occurrence: None)
  Receive Date: 20070130
  Receipt Date: 20070119
  Transmission Date: 20070707
  Serious: Yes (Death)
  Sender: FDA-Public Use
  Company Number: JP-PFIZER INC-2007006223

PATIENT
  Age: 80 Year
  Sex: Male

DRUGS (4)
  1. CARDENALIN [Suspect]
     Indication: HYPERTENSION
     Dosage: DAILY DOSE:.5MG
     Route: 048
     Dates: start: 20041004, end: 20070119
  2. URIEF [Suspect]
     Indication: BENIGN PROSTATIC HYPERPLASIA
     Dosage: DAILY DOSE:4MG
     Route: 048
     Dates: start: 20060706, end: 20070119
  3. AMLODIPINE BESYLATE [Suspect]
     Indication: HYPERTENSION
     Dosage: DAILY DOSE:5MG
     Route: 048
     Dates: start: 20060706, end: 20070119
  4. MAGNESIUM OXIDE [Concomitant]

REACTIONS (1)
  - ROAD TRAFFIC ACCIDENT [None]
